FAERS Safety Report 4450905-0 (Version None)
Quarter: 2004Q3

REPORT INFORMATION
  Report Type: 
  Country: None (occurrence: None)
  Receive Date: 20040916
  Receipt Date: 20020102
  Transmission Date: 20050211
  Serious: Yes (Other)
  Sender: FDA-Public Use
  Company Number: US-BRISTOL-MYERS SQUIBB COMPANY-11753928

PATIENT
  Sex: Female

DRUGS (8)
  1. STADOL [Suspect]
     Route: 045
  2. STADOL [Suspect]
     Route: 030
  3. DARVOCET [Concomitant]
  4. FIORINAL [Concomitant]
  5. PHENERGAN HCL [Concomitant]
  6. LORTAB [Concomitant]
  7. OXYCONTIN [Concomitant]
  8. PERCOCET [Concomitant]

REACTIONS (3)
  - DEPENDENCE [None]
  - HEART RATE IRREGULAR [None]
  - SWELLING [None]
